FAERS Safety Report 5145317-0 (Version None)
Quarter: 2006Q4

REPORT INFORMATION
  Report Type: 
  Country: None (occurrence: None)
  Receive Date: 20061101
  Receipt Date: 20061018
  Transmission Date: 20070319
  Serious: Yes (Death, Hospitalization)
  Sender: FDA-Public Use
  Company Number: 223934

PATIENT
  Age: 67 Year
  Sex: Male

DRUGS (14)
  1. RITUXIMAB (RITUXIMAB)CONC FOR SOLUTION FOR INFUSION [Suspect]
     Indication: RHEUMATOID ARTHRITIS
     Dosage: 1000 MG, DAYS 1+15, INTRAVENOUS
     Route: 042
     Dates: start: 20040504, end: 20060131
  2. METHYLPREDNISOLONE [Suspect]
     Indication: RHEUMATOID ARTHRITIS
     Dosage: 100 MG, DAYS 1+15, INTRAVENOUS
     Route: 042
     Dates: start: 20040504, end: 20060131
  3. PREDNISONE TAB [Suspect]
     Indication: RHEUMATOID ARTHRITIS
     Dosage: ORAL
     Route: 048
     Dates: start: 20040505, end: 20060130
  4. METHOTREXATE [Concomitant]
  5. FOLIC ACID [Concomitant]
  6. PREDNISOLONE [Concomitant]
  7. DAFALGAN CODEINE (ACETAMINOPHEN, CODEINE PHOSPHATE) [Concomitant]
  8. INDOMETHACIN [Concomitant]
  9. VALTRAN (NALOXONE HYDROCHLORIDE, TILIDINE HYDROCHLORIDE) [Concomitant]
  10. TRIAMCINOLONE ACETONIDE [Concomitant]
  11. ASPIRIN [Concomitant]
  12. DUOVENT (FENOTEROL, IPRATROPIUM BROMIDE) [Concomitant]
  13. LORMETAZEPAM (LORMETAZEPAM) [Concomitant]
  14. ACETYLCYSTEINE [Concomitant]

REACTIONS (6)
  - ASBESTOSIS [None]
  - CARDIAC FAILURE [None]
  - CHEST PAIN [None]
  - HEMIANOPIA HOMONYMOUS [None]
  - RENAL FAILURE [None]
  - RESPIRATORY FAILURE [None]
